FAERS Safety Report 9759851 (Version 8)
Quarter: 2014Q2

REPORT INFORMATION
  Report Type: Spontaneous
  Country: US (occurrence: US)
  Receive Date: 20131216
  Receipt Date: 20140501
  Transmission Date: 20141212
  Serious: No
  Sender: FDA-Public Use
  Company Number: US-009507513-1311USA010094

PATIENT
  Age: 56 Year
  Sex: Male

DRUGS (11)
  1. PEGINTRON [Suspect]
     Indication: HEPATITIS C
     Dosage: 0.5 ML, Q7DAYS, REDIPEN
     Route: 058
     Dates: start: 20131108, end: 2014
  2. PEGINTRON [Suspect]
     Dosage: 0.5 ML, Q7DAYS, REDIPEN
     Route: 058
     Dates: start: 20140408
  3. REBETOL [Suspect]
     Indication: HEPATITIS C
     Dosage: 400 MG AM + 600 MG PM; 1000 MG DAILY
     Route: 048
     Dates: start: 20131108, end: 2014
  4. REBETOL [Suspect]
     Dosage: 400 MG AM + 600 MG PM; 1000 MG DAILY
     Route: 048
     Dates: start: 20140408
  5. EFFEXOR [Concomitant]
     Dosage: UNK, QD
  6. TRAMADOL HYDROCHLORIDE [Concomitant]
     Indication: PAIN
     Dosage: AS NEEDED EVERY 6 HOURS
     Route: 048
  7. FLEXERIL [Concomitant]
     Dosage: 3 TIMES A DAY
     Route: 048
  8. NITROSTAT [Concomitant]
     Indication: CHEST PAIN
     Dosage: UNK, PRN
     Route: 060
  9. ORGATRAX [Concomitant]
     Dosage: 25MG-50MG
     Route: 048
  10. ASPIRIN [Concomitant]
     Indication: HEADACHE
     Dosage: 2 DF, PRN
  11. AMBIEN [Concomitant]
     Dosage: DAILY

REACTIONS (57)
  - Nicotine dependence [Unknown]
  - Electrocardiogram abnormal [Unknown]
  - Chest pain [Unknown]
  - Myalgia [Unknown]
  - Psychomotor hyperactivity [Unknown]
  - Insomnia [Unknown]
  - Pain [Unknown]
  - White blood cell count decreased [Unknown]
  - Platelet count decreased [Unknown]
  - Bruxism [Unknown]
  - Cardiac stress test abnormal [Unknown]
  - Angiopathy [Unknown]
  - Heart valve stenosis [Unknown]
  - Back pain [Unknown]
  - Memory impairment [Unknown]
  - Protein urine present [Unknown]
  - Renal disorder [Unknown]
  - Restlessness [Unknown]
  - Dysgeusia [Unknown]
  - Appetite disorder [Unknown]
  - Weight decreased [Unknown]
  - Rash [Unknown]
  - Testicular pain [Unknown]
  - Influenza like illness [Unknown]
  - Pyrexia [Unknown]
  - Asthenia [Unknown]
  - Urinary tract infection [Unknown]
  - Rash [Unknown]
  - Pruritus [Unknown]
  - Confusional state [Unknown]
  - Weight decreased [Unknown]
  - Disease recurrence [Unknown]
  - Dysphagia [Unknown]
  - Toothache [Unknown]
  - Tooth infection [Unknown]
  - Tooth fracture [Unknown]
  - Retching [Unknown]
  - Headache [Unknown]
  - Injection site erythema [Unknown]
  - Gingivitis [Unknown]
  - Dry mouth [Not Recovered/Not Resolved]
  - Epigastric discomfort [Unknown]
  - Weight decreased [Unknown]
  - Depression [Unknown]
  - Chest pain [Unknown]
  - Leukopenia [Unknown]
  - Thrombocytopenia [Unknown]
  - Poor quality sleep [Unknown]
  - Tooth extraction [Unknown]
  - Tooth disorder [Unknown]
  - Tooth infection [Unknown]
  - Tooth fracture [Unknown]
  - Decreased appetite [Unknown]
  - Retching [Unknown]
  - Drug dose omission [Unknown]
  - Drug dose omission [Unknown]
  - Product quality issue [Unknown]
